FAERS Safety Report 9157656 (Version 1)
Quarter: 2013Q1

REPORT INFORMATION
  Report Type: Spontaneous
  Country: US (occurrence: None)
  Receive Date: 20130212
  Receipt Date: 20130212
  Transmission Date: 20140127
  Serious: Yes (Other)
  Sender: FDA-Public Use
  Company Number: 1589737

PATIENT
  Sex: 0

DRUGS (1)
  1. HEPARIN SODIUM IN 0.9% SODIUM CHLORIDE [Suspect]
     Indication: CARDIAC OPERATION
     Dosage: NOT REPORTED, CONTINUOUS, (UNKNOWN)?INTRAVENOUS (NOT OTHERWISE SPECIFIED)
     Route: 042

REACTIONS (2)
  - Product quality issue [None]
  - Therapy cessation [None]
